FAERS Safety Report 8135611-3 (Version None)
Quarter: 2012Q1

REPORT INFORMATION
  Report Type: 
  Country: None (occurrence: None)
  Receive Date: 20120214
  Receipt Date: 20120208
  Transmission Date: 20120608
  Serious: Yes (Other)
  Sender: FDA-Public Use
  Company Number: PHHY2012MX011976

PATIENT
  Age: 39 Year
  Sex: Male

DRUGS (6)
  1. EXFORGE HCT [Suspect]
     Indication: HYPERTENSION
     Dosage: 1 TABLET (160/5/12.5 MG) DAILY
     Dates: start: 20110701
  2. NOOTROPIL [Concomitant]
     Dosage: UNK UKN, UNK
  3. VONTROL [Concomitant]
     Dosage: UNK UKN, UNK
  4. SERC [Concomitant]
     Dosage: UNK UKN, UNK
  5. NEBIVOLOL HCL [Concomitant]
     Dosage: UNK UKN, UNK
  6. PHENYTOIN SODIUM CAP [Concomitant]
     Dosage: UNK UKN, UNK

REACTIONS (10)
  - DYSPEPSIA [None]
  - LOSS OF CONSCIOUSNESS [None]
  - CEREBRAL CALCIFICATION [None]
  - CONVULSION [None]
  - DIZZINESS [None]
  - BLOOD TRIGLYCERIDES INCREASED [None]
  - CHEST PAIN [None]
  - TONGUE BITING [None]
  - ABDOMINAL PAIN UPPER [None]
  - VERTIGO [None]
